APPROVED DRUG PRODUCT: ACAMPROSATE CALCIUM
Active Ingredient: ACAMPROSATE CALCIUM
Strength: 333MG
Dosage Form/Route: TABLET, DELAYED RELEASE;ORAL
Application: A202229 | Product #001 | TE Code: AB
Applicant: GLENMARK PHARMACEUTICALS LTD
Approved: Jul 16, 2013 | RLD: No | RS: Yes | Type: RX